FAERS Safety Report 6298410-3 (Version None)
Quarter: 2009Q3

REPORT INFORMATION
  Report Type: 
  Country: None (occurrence: None)
  Receive Date: 20090805
  Receipt Date: 20090706
  Transmission Date: 20100115
  Serious: Yes (Hospitalization)
  Sender: FDA-Public Use
  Company Number: DE-WYE-H10432209

PATIENT
  Age: 17 Month
  Sex: Male

DRUGS (2)
  1. PANTOZOL [Suspect]
     Dosage: OVERDOSE AMOUNT UNKNOWN
     Route: 048
  2. MAPROTILINE [Suspect]
     Dosage: OVERDOSE AMOUNT UNKNOWN
     Route: 048

REACTIONS (2)
  - ACCIDENTAL DRUG INTAKE BY CHILD [None]
  - ACCIDENTAL OVERDOSE [None]
